FAERS Safety Report 25250924 (Version 6)
Quarter: 2025Q2

REPORT INFORMATION
  Report Type: Report from Study
  Country: KR (occurrence: KR)
  Receive Date: 20250429
  Receipt Date: 20250624
  Transmission Date: 20250716
  Serious: Yes (Life-Threatening, Hospitalization, Other)
  Sender: AUROBINDO
  Company Number: US-AUROBINDO-AUR-APL-2025-021880

PATIENT
  Age: 78 Year
  Sex: Female
  Weight: 48.5 kg

DRUGS (53)
  1. PRALATREXATE [Suspect]
     Active Substance: PRALATREXATE
     Indication: Peripheral T-cell lymphoma unspecified stage IV
     Route: 065
     Dates: start: 20241120
  2. PRALATREXATE [Suspect]
     Active Substance: PRALATREXATE
     Route: 065
     Dates: start: 20241127
  3. PRALATREXATE [Suspect]
     Active Substance: PRALATREXATE
     Route: 065
     Dates: start: 20241218
  4. PRALATREXATE [Suspect]
     Active Substance: PRALATREXATE
     Dosage: 28.4 MILLIGRAM, ONCE A DAY
     Route: 042
     Dates: start: 20250402
  5. PRALATREXATE [Suspect]
     Active Substance: PRALATREXATE
     Route: 065
     Dates: start: 20250410, end: 20250410
  6. PRALATREXATE [Suspect]
     Active Substance: PRALATREXATE
     Route: 065
     Dates: start: 20250502, end: 20250502
  7. PRALATREXATE [Suspect]
     Active Substance: PRALATREXATE
     Route: 065
     Dates: start: 20250502, end: 20250502
  8. PRALATREXATE [Suspect]
     Active Substance: PRALATREXATE
     Route: 065
     Dates: start: 20250604
  9. CYCLOPHOSPHAMIDE [Suspect]
     Active Substance: CYCLOPHOSPHAMIDE
     Indication: Peripheral T-cell lymphoma unspecified stage IV
     Route: 065
     Dates: start: 20241120
  10. CYCLOPHOSPHAMIDE [Suspect]
     Active Substance: CYCLOPHOSPHAMIDE
     Route: 065
     Dates: start: 20241218
  11. CYCLOPHOSPHAMIDE [Suspect]
     Active Substance: CYCLOPHOSPHAMIDE
     Dosage: 1065 MILLIGRAM, ONCE A DAY
     Route: 042
     Dates: start: 20250402, end: 20250527
  12. CYCLOPHOSPHAMIDE [Suspect]
     Active Substance: CYCLOPHOSPHAMIDE
     Route: 042
     Dates: start: 20250502, end: 20250502
  13. PREDNISONE [Suspect]
     Active Substance: PREDNISONE
     Indication: Peripheral T-cell lymphoma unspecified stage IV
     Route: 065
     Dates: start: 20241120
  14. PREDNISONE [Suspect]
     Active Substance: PREDNISONE
     Route: 065
     Dates: start: 20241121
  15. PREDNISONE [Suspect]
     Active Substance: PREDNISONE
     Route: 065
     Dates: start: 20241122
  16. PREDNISONE [Suspect]
     Active Substance: PREDNISONE
     Route: 065
     Dates: start: 20241123
  17. PREDNISONE [Suspect]
     Active Substance: PREDNISONE
     Route: 065
     Dates: start: 20241123
  18. PREDNISONE [Suspect]
     Active Substance: PREDNISONE
     Dosage: 50 MILLIGRAM, TWO TIMES A DAY
     Route: 048
     Dates: start: 20250402
  19. PREDNISONE [Suspect]
     Active Substance: PREDNISONE
     Dosage: 100 MILLIGRAM, ONCE A DAY
     Route: 048
     Dates: start: 20250402, end: 20250406
  20. PREDNISONE [Suspect]
     Active Substance: PREDNISONE
     Route: 048
     Dates: start: 20250502
  21. ONCOVIN [Suspect]
     Active Substance: VINCRISTINE SULFATE
     Indication: Peripheral T-cell lymphoma unspecified stage IV
     Dosage: 1.99 MILLIGRAM, ONCE A DAY
     Route: 042
     Dates: start: 20250402, end: 20250402
  22. ONCOVIN [Suspect]
     Active Substance: VINCRISTINE SULFATE
     Dosage: 1.4 MILLIGRAM, ONCE A DAY
     Route: 042
     Dates: start: 20250502, end: 20250502
  23. Glura m xr [Concomitant]
     Indication: Product used for unknown indication
     Route: 065
     Dates: start: 2023
  24. FOLIC ACID [Concomitant]
     Active Substance: FOLIC ACID
     Indication: Toxicity to various agents
     Dosage: 1 MILLIGRAM, ONCE A DAY
     Route: 048
     Dates: start: 20250326
  25. Dicamax d plus [Concomitant]
     Indication: Diabetes mellitus
     Dosage: 250 MILLIGRAM, ONCE A DAY
     Route: 048
     Dates: start: 2018
  26. Crerova [Concomitant]
     Indication: Dyslipidaemia
     Dosage: 10 MILLIGRAM, ONCE A DAY
     Route: 048
     Dates: start: 2020
  27. Glitazone [Concomitant]
     Indication: Diabetes mellitus
     Dosage: 15 MILLIGRAM, ONCE A DAY
     Route: 048
     Dates: start: 2018
  28. Olmeduo [Concomitant]
     Indication: Hypertension
     Dosage: 1 DOSAGE FORM, ONCE A DAY
     Route: 048
     Dates: start: 2018
  29. Hemonics [Concomitant]
     Indication: Product used for unknown indication
     Dosage: 1 MILLIGRAM, ONCE A DAY
     Route: 030
     Dates: start: 20250331, end: 20250331
  30. Godex [Concomitant]
     Indication: Product used for unknown indication
     Dosage: 1 DOSAGE FORM, 3 TIMES A DAY
     Route: 048
     Dates: start: 20250331
  31. URSODIOL [Concomitant]
     Active Substance: URSODIOL
     Indication: Product used for unknown indication
     Dosage: 200 MILLIGRAM, 3 TIMES A DAY
     Route: 048
     Dates: start: 20250331
  32. HUMALOG [Concomitant]
     Active Substance: INSULIN LISPRO
     Indication: Product used for unknown indication
     Route: 042
     Dates: start: 20250331
  33. HUMALOG [Concomitant]
     Active Substance: INSULIN LISPRO
     Route: 042
     Dates: start: 20250414, end: 20250424
  34. Vacrax [Concomitant]
     Indication: Product used for unknown indication
     Route: 061
     Dates: start: 20250421, end: 20250421
  35. ONDANSETRON [Concomitant]
     Active Substance: ONDANSETRON
     Indication: Product used for unknown indication
     Route: 042
     Dates: start: 20250402
  36. TEGOPRAZAN [Concomitant]
     Active Substance: TEGOPRAZAN
     Indication: Product used for unknown indication
     Route: 048
     Dates: start: 20250402
  37. PEGFILGRASTIM [Concomitant]
     Active Substance: PEGFILGRASTIM
     Indication: Product used for unknown indication
     Route: 058
     Dates: start: 20250411
  38. AMINO ACIDS\DEXTROSE\ELECTROLYTES NOS\SOYBEAN OIL [Concomitant]
     Active Substance: AMINO ACIDS\DEXTROSE\ELECTROLYTES NOS\SOYBEAN OIL
     Indication: Nutritional supplementation
     Dosage: 986 MILLIGRAM, ONCE A DAY
     Route: 042
     Dates: start: 20250414, end: 20250424
  39. PHENIRAMINE [Concomitant]
     Active Substance: PHENIRAMINE
     Indication: Product used for unknown indication
     Route: 042
     Dates: start: 20250415, end: 20250420
  40. PHENIRAMINE [Concomitant]
     Active Substance: PHENIRAMINE
     Route: 042
     Dates: start: 20250422, end: 20250422
  41. MAGNESIUM SULFATE [Concomitant]
     Active Substance: MAGNESIUM SULFATE
     Indication: Nutritional supplementation
     Dosage: 4 MILLIGRAM, ONCE A DAY
     Route: 042
     Dates: start: 20250415, end: 20250424
  42. KCL [Concomitant]
     Active Substance: POTASSIUM CHLORIDE
     Indication: Product used for unknown indication
     Route: 042
     Dates: start: 20250415, end: 20250420
  43. LENOGRASTIM [Concomitant]
     Active Substance: LENOGRASTIM
     Indication: Product used for unknown indication
     Route: 042
     Dates: start: 20250416, end: 20250417
  44. Phosten [Concomitant]
     Indication: Nutritional supplementation
     Dosage: 20 MILLILITER, ONCE A DAY
     Route: 042
     Dates: start: 20250418, end: 20250420
  45. Fotagel [Concomitant]
     Indication: Product used for unknown indication
     Dosage: 20 MILLILITER, 3 TIMES A DAY
     Route: 048
     Dates: start: 20250416, end: 20250417
  46. TRAMADOL HYDROCHLORIDE [Concomitant]
     Active Substance: TRAMADOL HYDROCHLORIDE
     Indication: Product used for unknown indication
     Route: 042
     Dates: start: 20250314, end: 20250314
  47. TRAMADOL HYDROCHLORIDE [Concomitant]
     Active Substance: TRAMADOL HYDROCHLORIDE
     Route: 042
     Dates: start: 20250314, end: 20250318
  48. VITAMINS [Concomitant]
     Active Substance: VITAMINS
     Indication: Product used for unknown indication
     Dosage: UNK, ONCE A DAY
     Route: 042
     Dates: start: 20250418, end: 20250424
  49. Vacrax [Concomitant]
     Indication: Product used for unknown indication
     Route: 042
     Dates: start: 20250420, end: 20250420
  50. Zoylex [Concomitant]
     Indication: Product used for unknown indication
     Dosage: 250 UNK, 3 TIMES A DAY
     Route: 042
     Dates: start: 20250421, end: 20250427
  51. Topisol [Concomitant]
     Indication: Product used for unknown indication
     Dosage: 1 UNK, TWO TIMES A DAY
     Route: 061
     Dates: start: 20250421, end: 20250424
  52. Solondo [Concomitant]
     Indication: Product used for unknown indication
     Route: 050
     Dates: start: 20250416, end: 20250416
  53. AMOXICILLIN [Concomitant]
     Active Substance: AMOXICILLIN
     Indication: Product used for unknown indication
     Route: 050
     Dates: start: 20250416, end: 20250416

REACTIONS (4)
  - Febrile neutropenia [Not Recovered/Not Resolved]
  - Thrombocytopenia [Recovered/Resolved]
  - Stomatitis [Recovered/Resolved]
  - Hyperglycaemia [Recovered/Resolved]

NARRATIVE: CASE EVENT DATE: 20250403
